FAERS Safety Report 24580502 (Version 2)
Quarter: 2024Q4

REPORT INFORMATION
  Report Type: Spontaneous
  Country: JP (occurrence: JP)
  Receive Date: 20241105
  Receipt Date: 20241112
  Transmission Date: 20250115
  Serious: Yes (Hospitalization)
  Sender: BAYER HEALTHCARE PHARMACEUTICALS INC.
  Company Number: JP-BAYER-2024A157505

PATIENT
  Age: 73 Year
  Sex: Female

DRUGS (2)
  1. KERENDIA [Suspect]
     Active Substance: FINERENONE
     Dosage: DAILY DOSE 10 MG
     Dates: end: 20241105
  2. KERENDIA [Suspect]
     Active Substance: FINERENONE
     Dosage: DAILY DOSE 10 MG
     Dates: start: 20241107

REACTIONS (1)
  - Fracture [Not Recovered/Not Resolved]
